FAERS Safety Report 25072443 (Version 1)
Quarter: 2025Q1

REPORT INFORMATION
  Report Type: Report from Study
  Country: US (occurrence: US)
  Receive Date: 20250313
  Receipt Date: 20250313
  Transmission Date: 20250409
  Serious: Yes (Hospitalization)
  Sender: TEVA
  Company Number: US-TEVA-VS-3305993

PATIENT
  Age: 64 Year
  Sex: Female

DRUGS (1)
  1. AUSTEDO XR [Suspect]
     Active Substance: DEUTETRABENAZINE
     Indication: Huntington^s disease
     Dosage: TEVA,,LAST DOSE TAKEN AT THE END OF 2025-01
     Route: 048
     Dates: start: 202412

REACTIONS (2)
  - Blood sodium decreased [Unknown]
  - Somnolence [Unknown]
